FAERS Safety Report 5475130-6 (Version None)
Quarter: 2007Q4

REPORT INFORMATION
  Report Type: 
  Country: None (occurrence: None)
  Receive Date: 20071002
  Receipt Date: 20070920
  Transmission Date: 20080405
  Serious: Yes (Other)
  Sender: FDA-Public Use
  Company Number: US-PFIZER INC-2007078811

PATIENT
  Sex: Female
  Weight: 104.3 kg

DRUGS (2)
  1. DETROL LA [Suspect]
     Indication: POLLAKIURIA
  2. VITAMINS [Concomitant]

REACTIONS (2)
  - HEADACHE [None]
  - HYPOAESTHESIA [None]
